FAERS Safety Report 25949520 (Version 2)
Quarter: 2025Q4

REPORT INFORMATION
  Report Type: Spontaneous
  Country: EU (occurrence: EU)
  Receive Date: 20251022
  Receipt Date: 20251113
  Transmission Date: 20260117
  Serious: Yes (Death, Other)
  Sender: ELI LILLY AND COMPANY
  Company Number: EU-ELI_LILLY_AND_COMPANY-ES202510018206

PATIENT
  Age: 50 Year
  Sex: Male

DRUGS (2)
  1. RETEVMO [Suspect]
     Active Substance: SELPERCATINIB
     Indication: Lung neoplasm malignant
     Dosage: 80 MG, BID
     Route: 048
     Dates: start: 202509
  2. RETEVMO [Suspect]
     Active Substance: SELPERCATINIB
     Dosage: 160 MG, BID
     Route: 048

REACTIONS (6)
  - Cerebral haemorrhage [Fatal]
  - Fall [Unknown]
  - Loss of consciousness [Unknown]
  - Malaise [Unknown]
  - Cough [Unknown]
  - Headache [Unknown]
